FAERS Safety Report 17793987 (Version 1)
Quarter: 2020Q2

REPORT INFORMATION
  Report Type: Spontaneous
  Country: DE (occurrence: DE)
  Receive Date: 20200515
  Receipt Date: 20200515
  Transmission Date: 20200714
  Serious: Yes (Other)
  Sender: FDA-Public Use
  Company Number: NVSC2020DE130792

PATIENT
  Age: 44 Year
  Sex: Female
  Weight: 64 kg

DRUGS (1)
  1. CIPROFLOXACIN. [Suspect]
     Active Substance: CIPROFLOXACIN
     Indication: PRODUCT USED FOR UNKNOWN INDICATION
     Dosage: 500 MG, QD
     Route: 048
     Dates: start: 201604, end: 20160414

REACTIONS (5)
  - Tendon disorder [Unknown]
  - Muscular weakness [Unknown]
  - Nerve injury [Unknown]
  - Ocular discomfort [Unknown]
  - Muscle twitching [Unknown]

NARRATIVE: CASE EVENT DATE: 20161109
